FAERS Safety Report 7443210-1 (Version None)
Quarter: 2011Q2

REPORT INFORMATION
  Report Type: 
  Country: None (occurrence: None)
  Receive Date: 20110428
  Receipt Date: 20110422
  Transmission Date: 20111010
  Serious: Yes (Hospitalization)
  Sender: FDA-Public Use
  Company Number: B0712518A

PATIENT
  Sex: Male
  Weight: 86.8 kg

DRUGS (7)
  1. ROSIGLITAZONE MALEATE [Suspect]
     Route: 048
  2. LOPRESSOR [Concomitant]
  3. ASPIRIN [Concomitant]
  4. AVAPRO [Concomitant]
  5. CELEBREX [Concomitant]
  6. COLCHICINE [Concomitant]
  7. INDOCIN SR [Concomitant]

REACTIONS (3)
  - GRAND MAL CONVULSION [None]
  - CEREBROVASCULAR ACCIDENT [None]
  - BUNDLE BRANCH BLOCK RIGHT [None]
